FAERS Safety Report 24685675 (Version 3)
Quarter: 2025Q1

REPORT INFORMATION
  Report Type: Spontaneous
  Country: CA (occurrence: CA)
  Receive Date: 20241202
  Receipt Date: 20250214
  Transmission Date: 20250409
  Serious: Yes (Life-Threatening, Hospitalization, Other)
  Sender: NOVARTIS
  Company Number: CA-SANDOZ-SDZ2024CA098283

PATIENT
  Age: 59 Year
  Sex: Male
  Weight: 77 kg

DRUGS (29)
  1. CYCLOSPORINE [Suspect]
     Active Substance: CYCLOSPORINE
     Indication: Aplastic anaemia
     Dosage: 50 MG, QD (25 MG, BID)
     Route: 048
  2. CYCLOSPORINE [Suspect]
     Active Substance: CYCLOSPORINE
     Indication: Thrombotic thrombocytopenic purpura
     Dosage: 300 MG, QD (150 MG, BID)
     Route: 048
  3. CYCLOSPORINE [Suspect]
     Active Substance: CYCLOSPORINE
     Indication: Immunosuppressant drug therapy
     Dosage: 175 MG, Q12H
     Route: 048
  4. CYCLOSPORINE [Suspect]
     Active Substance: CYCLOSPORINE
     Dosage: 175 MG, Q12H
     Route: 048
  5. CYCLOSPORINE [Suspect]
     Active Substance: CYCLOSPORINE
     Route: 065
  6. RITUXIMAB [Suspect]
     Active Substance: RITUXIMAB
     Indication: Immunosuppressant drug therapy
     Dosage: 900 MG, QW
     Route: 042
  7. RITUXIMAB [Suspect]
     Active Substance: RITUXIMAB
     Indication: Thrombotic thrombocytopenic purpura
     Dosage: 90 MG, QW
     Route: 042
  8. RITUXIMAB [Suspect]
     Active Substance: RITUXIMAB
     Dosage: 375 MG/M2, QW
     Route: 065
  9. RITUXIMAB [Suspect]
     Active Substance: RITUXIMAB
     Dosage: 375 MG/M2, QW
     Route: 065
  10. RITUXIMAB [Suspect]
     Active Substance: RITUXIMAB
     Route: 042
  11. RITUXIMAB [Suspect]
     Active Substance: RITUXIMAB
     Route: 065
  12. BORTEZOMIB [Suspect]
     Active Substance: BORTEZOMIB
     Indication: Thrombotic thrombocytopenic purpura
     Route: 042
  13. BORTEZOMIB [Suspect]
     Active Substance: BORTEZOMIB
     Indication: Immunosuppressant drug therapy
     Route: 042
  14. BORTEZOMIB [Suspect]
     Active Substance: BORTEZOMIB
     Route: 042
  15. CYCLOPHOSPHAMIDE [Suspect]
     Active Substance: CYCLOPHOSPHAMIDE
     Indication: Thrombotic thrombocytopenic purpura
     Route: 042
  16. CYCLOPHOSPHAMIDE [Suspect]
     Active Substance: CYCLOPHOSPHAMIDE
     Indication: Immunosuppressant drug therapy
     Route: 042
  17. CYCLOPHOSPHAMIDE [Suspect]
     Active Substance: CYCLOPHOSPHAMIDE
     Route: 042
  18. CYCLOPHOSPHAMIDE [Suspect]
     Active Substance: CYCLOPHOSPHAMIDE
     Dosage: 1250 MG, QD
     Route: 042
  19. METHYLPREDNISOLONE SODIUM SUCCINATE [Suspect]
     Active Substance: METHYLPREDNISOLONE SODIUM SUCCINATE
     Indication: Thrombotic thrombocytopenic purpura
     Dosage: 100 MG, BIW (INJECTION)
     Route: 065
  20. METHYLPREDNISOLONE SODIUM SUCCINATE [Suspect]
     Active Substance: METHYLPREDNISOLONE SODIUM SUCCINATE
     Indication: Immunosuppressant drug therapy
     Route: 065
  21. METHYLPREDNISOLONE SODIUM SUCCINATE [Suspect]
     Active Substance: METHYLPREDNISOLONE SODIUM SUCCINATE
     Route: 065
  22. METHYLPREDNISOLONE SODIUM SUCCINATE [Suspect]
     Active Substance: METHYLPREDNISOLONE SODIUM SUCCINATE
     Dosage: UNK, QD
     Route: 065
  23. ACETYLCYSTEINE [Suspect]
     Active Substance: ACETYLCYSTEINE
     Indication: Thrombotic thrombocytopenic purpura
     Dosage: 18 G, QD
     Route: 042
  24. CYCLOPHOSPHAMIDE [Suspect]
     Active Substance: CYCLOPHOSPHAMIDE
     Indication: Thrombotic thrombocytopenic purpura
     Route: 042
  25. CYCLOPHOSPHAMIDE [Suspect]
     Active Substance: CYCLOPHOSPHAMIDE
     Route: 042
  26. AMLODIPINE [Concomitant]
     Active Substance: AMLODIPINE BESYLATE
     Indication: Product used for unknown indication
     Route: 065
  27. PANTOPRAZOLE [Concomitant]
     Active Substance: PANTOPRAZOLE
     Indication: Product used for unknown indication
     Route: 065
  28. ACYCLOVIR [Concomitant]
     Active Substance: ACYCLOVIR
     Indication: Product used for unknown indication
     Route: 065
  29. SEPTRA [Concomitant]
     Active Substance: SULFAMETHOXAZOLE\TRIMETHOPRIM
     Indication: Product used for unknown indication
     Route: 042

REACTIONS (22)
  - Abdominal pain [Recovering/Resolving]
  - Abdominal pain upper [Recovered/Resolved]
  - Abdominal abscess [Unknown]
  - Bacteraemia [Unknown]
  - Brain oedema [Unknown]
  - Candida infection [Unknown]
  - Cerebral infarction [Unknown]
  - Cerebrovascular accident [Unknown]
  - Clostridium difficile infection [Unknown]
  - Empyema [Unknown]
  - Enterococcal infection [Unknown]
  - Hemianopia [Unknown]
  - Intentional product misuse [Unknown]
  - Klebsiella infection [Unknown]
  - Muscular weakness [Unknown]
  - Sepsis [Unknown]
  - Staphylococcal bacteraemia [Unknown]
  - Thrombotic thrombocytopenic purpura [Unknown]
  - Vascular device infection [Unknown]
  - Treatment failure [Unknown]
  - Drug ineffective [Unknown]
  - Off label use [Unknown]
